FAERS Safety Report 7043926-5 (Version None)
Quarter: 2010Q4

REPORT INFORMATION
  Report Type: 
  Country: None (occurrence: None)
  Receive Date: 20101012
  Receipt Date: 20101012
  Transmission Date: 20110411
  Serious: Yes (Life-Threatening)
  Sender: FDA-Public Use
  Company Number: None

PATIENT
  Sex: Female
  Weight: 60.3284 kg

DRUGS (1)
  1. ESTRACE [Suspect]
     Indication: UTEROVAGINAL PROLAPSE
     Dosage: 1/2 GRAM DAILY VAG, 1 GRAM 3 TIMES WEEKLY VAG
     Route: 067
     Dates: start: 20080227, end: 20100525

REACTIONS (1)
  - BREAST CANCER IN SITU [None]
